FAERS Safety Report 9673831 (Version 2)
Quarter: 2014Q1

REPORT INFORMATION
  Report Type: Spontaneous
  Country: US (occurrence: US)
  Receive Date: 20131106
  Receipt Date: 20140102
  Transmission Date: 20141002
  Serious: Yes (Other)
  Sender: FDA-Public Use
  Company Number: US-AMGEN-USASP2013072969

PATIENT
  Age: 69 Year
  Sex: Female

DRUGS (3)
  1. ENBREL [Suspect]
     Indication: PSORIASIS
     Dosage: 50 MG, 2 TIMES/WK
     Route: 058
     Dates: start: 20130325
  2. METFORMIN [Concomitant]
     Dosage: UNK
  3. PRAVASTATIN [Concomitant]
     Dosage: UNK

REACTIONS (3)
  - Lower respiratory tract infection [Not Recovered/Not Resolved]
  - Nasopharyngitis [Not Recovered/Not Resolved]
  - Upper respiratory tract infection [Recovered/Resolved]
